FAERS Safety Report 9775441 (Version 1)
Quarter: 2013Q4

REPORT INFORMATION
  Report Type: Spontaneous
  Country: GB (occurrence: None)
  Receive Date: 20131218
  Receipt Date: 20131218
  Transmission Date: 20140711
  Serious: Yes (Hospitalization)
  Sender: FDA-Public Use
  Company Number: FK201305381

PATIENT
  Age: 89 Year
  Sex: Female

DRUGS (9)
  1. METHOTREXATE [Suspect]
     Indication: RHEUMATOID ARTHRITIS
     Dosage: 1 IN 1 WK, ORAL
     Route: 048
     Dates: start: 2009, end: 201307
  2. RITUXIMAB (RITUXIMAB) (RITUXIMAB) [Suspect]
     Indication: RHEUMATOID ARTHRITIS
     Dosage: 1 IN TOTAL, INTRAVENOUS (NOT OTHERWISE SPECIFIED)
     Route: 042
     Dates: start: 201307, end: 201307
  3. ADCAL (CALCIUM CARBONATE) [Concomitant]
  4. ALENDRONIC ACID [Concomitant]
  5. AMLODIPINE [Concomitant]
  6. BLOOD PRESSURE MEDICATION (OTHER BLOOD PRODUCTS) [Concomitant]
  7. LEVOTHYROXINE [Concomitant]
  8. QUININE [Concomitant]
  9. SULFASALAZINE [Concomitant]

REACTIONS (1)
  - Squamous cell carcinoma of the tongue [None]
